FAERS Safety Report 23194378 (Version 8)
Quarter: 2024Q3

REPORT INFORMATION
  Report Type: Report from Study
  Country: US (occurrence: US)
  Receive Date: 20231117
  Receipt Date: 20240701
  Transmission Date: 20241017
  Serious: No
  Sender: ACADIA PHARMACEUTICALS
  Company Number: US-ACADIA PHARMACEUTICALS INC.-ACA-2023-TRF-004881

PATIENT
  Age: 11 Year
  Sex: Female

DRUGS (23)
  1. DAYBUE [Suspect]
     Active Substance: TROFINETIDE
     Indication: Rett syndrome
     Dosage: 10 MILLILITER, BID VIA G-TUBE
     Dates: start: 20231018
  2. DAYBUE [Suspect]
     Active Substance: TROFINETIDE
     Dosage: 15 MILLILITER, BID VIA G-TUBE
  3. DAYBUE [Suspect]
     Active Substance: TROFINETIDE
     Dosage: 20 MILLILITER, QD VIA G-TUBE
  4. DAYBUE [Suspect]
     Active Substance: TROFINETIDE
     Dosage: 25 MILLILITER, QD VIA G-TUBE
  5. DAYBUE [Suspect]
     Active Substance: TROFINETIDE
     Dosage: 20 MILLILITER, BID VIA G-TUBE
  6. DAYBUE [Suspect]
     Active Substance: TROFINETIDE
     Dosage: 15 MILLILITER, BID VIA G-TUBE
  7. DAYBUE [Suspect]
     Active Substance: TROFINETIDE
     Dosage: 40 MILLILITER, BID VIA G-TUBE
  8. DAYBUE [Suspect]
     Active Substance: TROFINETIDE
     Dosage: 35 MILLILITER, BID VIA G-TUBE
  9. DAYBUE [Suspect]
     Active Substance: TROFINETIDE
     Dosage: 20 MILLILITER VIA G-TUBE
  10. DAYBUE [Suspect]
     Active Substance: TROFINETIDE
     Dosage: 30 MILLILITER, QD VIA G-TUBE
  11. DAYBUE [Suspect]
     Active Substance: TROFINETIDE
     Dosage: 50 MILLILITER, BID VIA G-TUBE
     Dates: end: 20240107
  12. DAYBUE [Suspect]
     Active Substance: TROFINETIDE
     Dosage: 20ML IN THE AM AND 10ML IN PM VIA G-TUBE
     Dates: start: 202402
  13. DAYBUE [Suspect]
     Active Substance: TROFINETIDE
     Dosage: 35 MILLILITER, QD VIA G-TUBE
  14. DAYBUE [Suspect]
     Active Substance: TROFINETIDE
     Dosage: 40 MILLILITER, QD, G-TUBE
  15. DAYBUE [Suspect]
     Active Substance: TROFINETIDE
     Dosage: 30 MILLILITER, BID VIA G-TUBE
  16. DAYBUE [Suspect]
     Active Substance: TROFINETIDE
     Dosage: 25 MILLILITER, BID, G-TUBE
  17. DAYBUE [Suspect]
     Active Substance: TROFINETIDE
     Dosage: 30 MILLILITER, BID VIA G-TUBE
  18. DAYBUE [Suspect]
     Active Substance: TROFINETIDE
     Dosage: 35 MILLILITER, BID VIA G-TUBE
  19. DAYBUE [Suspect]
     Active Substance: TROFINETIDE
     Dosage: 40 MILLILITER, BID VIA G-TUBE
  20. DAYBUE [Suspect]
     Active Substance: TROFINETIDE
     Dosage: 30 MILLILITER, BID VIA G-TUBE
  21. DAYBUE [Suspect]
     Active Substance: TROFINETIDE
     Dosage: 45 MILLILITER, TID VIA G-TUBE
  22. DAYBUE [Suspect]
     Active Substance: TROFINETIDE
     Dosage: 30 MILLILITER, BID VIA G-TUBE
  23. MOTRIN [Concomitant]
     Active Substance: IBUPROFEN

REACTIONS (38)
  - Dyskinesia [Recovering/Resolving]
  - Inappropriate schedule of product administration [Not Recovered/Not Resolved]
  - Drooling [Recovering/Resolving]
  - Drooling [Recovering/Resolving]
  - Irritability [Not Recovered/Not Resolved]
  - Abdominal distension [Not Recovered/Not Resolved]
  - Foaming at mouth [Recovered/Resolved]
  - Irritability [Not Recovered/Not Resolved]
  - Crying [Not Recovered/Not Resolved]
  - Sleep disorder [Not Recovered/Not Resolved]
  - Flatulence [Not Recovered/Not Resolved]
  - Faeces soft [Not Recovered/Not Resolved]
  - Drug ineffective [Not Recovered/Not Resolved]
  - Crying [Not Recovered/Not Resolved]
  - Nausea [Not Recovered/Not Resolved]
  - Flatulence [Not Recovered/Not Resolved]
  - Product dose omission issue [Not Recovered/Not Resolved]
  - Product dose omission issue [Not Recovered/Not Resolved]
  - Inappropriate schedule of product administration [Not Recovered/Not Resolved]
  - Abdominal distension [Not Recovered/Not Resolved]
  - Underdose [Not Recovered/Not Resolved]
  - Inappropriate schedule of product administration [Not Recovered/Not Resolved]
  - Constipation [Not Recovered/Not Resolved]
  - Inappropriate schedule of product administration [Not Recovered/Not Resolved]
  - Drug ineffective [Not Recovered/Not Resolved]
  - Blood iron decreased [Not Recovered/Not Resolved]
  - Balance disorder [Recovered/Resolved]
  - Prescribed underdose [Unknown]
  - Fall [Recovered/Resolved]
  - Behaviour disorder [Not Recovered/Not Resolved]
  - Malaise [Not Recovered/Not Resolved]
  - Influenza like illness [Not Recovered/Not Resolved]
  - Crying [Unknown]
  - Drooling [Recovered/Resolved]
  - Diarrhoea [Recovering/Resolving]
  - Diarrhoea [Recovered/Resolved]
  - Diarrhoea [Not Recovered/Not Resolved]
  - Diarrhoea [Recovering/Resolving]

NARRATIVE: CASE EVENT DATE: 20231001
